FAERS Safety Report 10301467 (Version 1)
Quarter: 2014Q3

REPORT INFORMATION
  Report Type: Spontaneous
  Country: US (occurrence: None)
  Receive Date: 20140710
  Receipt Date: 20140710
  Transmission Date: 20150326
  Serious: No
  Sender: FDA-Public Use
  Company Number: None

PATIENT
  Age: 78 Year
  Sex: Male
  Weight: 86.7 kg

DRUGS (1)
  1. SUCCINYLCHOLINE [Suspect]
     Active Substance: SUCCINYLCHOLINE
     Indication: ENDOTRACHEAL INTUBATION
     Route: 042
     Dates: start: 20140705

REACTIONS (2)
  - Paralysis [None]
  - Drug ineffective [None]

NARRATIVE: CASE EVENT DATE: 20140705
